FAERS Safety Report 7762437-2 (Version None)
Quarter: 2011Q3

REPORT INFORMATION
  Report Type: 
  Country: None (occurrence: None)
  Receive Date: 20110920
  Receipt Date: 20110914
  Transmission Date: 20111222
  Serious: Yes (Hospitalization, Other)
  Sender: FDA-Public Use
  Company Number: US-VERTEX PHARMACEUTICALS INC.-AE-2011-001534

PATIENT
  Sex: Female

DRUGS (7)
  1. RIBAVIRIN [Concomitant]
     Indication: HEPATITIS C
  2. DIOVAN [Concomitant]
     Route: 048
  3. PEGASYS [Concomitant]
     Indication: HEPATITIS C
     Route: 058
  4. PLAVIX [Concomitant]
     Route: 048
  5. INCIVEK [Suspect]
     Indication: HEPATITIS C
     Route: 048
  6. PREVACID [Concomitant]
     Route: 048
  7. ATENOLOL [Concomitant]
     Route: 048

REACTIONS (9)
  - SUICIDAL IDEATION [None]
  - HAEMORRHOIDS [None]
  - NAUSEA [None]
  - ANORECTAL DISCOMFORT [None]
  - DEPRESSION [None]
  - MOOD SWINGS [None]
  - ANAEMIA [None]
  - VULVOVAGINAL BURNING SENSATION [None]
  - MOUTH ULCERATION [None]
